FAERS Safety Report 6253602-4 (Version None)
Quarter: 2009Q3

REPORT INFORMATION
  Report Type: 
  Country: None (occurrence: None)
  Receive Date: 20090701
  Receipt Date: 20090624
  Transmission Date: 20100115
  Serious: Yes (Life-Threatening, Hospitalization)
  Sender: FDA-Public Use
  Company Number: FR-BAXTER-2009BH010674

PATIENT
  Age: 68 Year
  Sex: Female

DRUGS (6)
  1. UROMITEXAN BAXTER [Suspect]
     Indication: METASTATIC UTERINE CANCER
     Route: 042
     Dates: start: 20090202, end: 20090204
  2. UROMITEXAN BAXTER [Suspect]
     Route: 042
     Dates: start: 20090205, end: 20090205
  3. HOLOXAN BAXTER [Suspect]
     Indication: METASTATIC UTERINE CANCER
     Route: 042
     Dates: start: 20090202, end: 20090204
  4. CISPLATIN BAXTER [Suspect]
     Indication: METASTATIC UTERINE CANCER
     Route: 042
     Dates: start: 20090202, end: 20090202
  5. METHYLPREDNISOLONE [Concomitant]
     Indication: DRUG USE FOR UNKNOWN INDICATION
     Route: 042
     Dates: start: 20090202, end: 20090204
  6. KYTRIL [Concomitant]
     Indication: DRUG USE FOR UNKNOWN INDICATION
     Route: 042
     Dates: start: 20090202, end: 20090204

REACTIONS (1)
  - RENAL FAILURE [None]
